FAERS Safety Report 17415859 (Version 2)
Quarter: 2020Q1

REPORT INFORMATION
  Report Type: Spontaneous
  Country: US (occurrence: US)
  Receive Date: 20200213
  Receipt Date: 20200306
  Transmission Date: 20200409
  Serious: No
  Sender: FDA-Public Use
  Company Number: US-SUNOVION-2020SUN000369

PATIENT
  Weight: 53.06 kg

DRUGS (1)
  1. LATUDA [Suspect]
     Active Substance: LURASIDONE HYDROCHLORIDE
     Dosage: 80 MG, QD (1 TAB AT BEDTIME)
     Route: 048
     Dates: start: 20190603

REACTIONS (1)
  - Toothache [Not Recovered/Not Resolved]
